FAERS Safety Report 9079326 (Version 1)
Quarter: 2013Q1

REPORT INFORMATION
  Report Type: Spontaneous
  Country: KR (occurrence: KR)
  Receive Date: 20130215
  Receipt Date: 20130215
  Transmission Date: 20140127
  Serious: Yes (Other)
  Sender: FDA-Public Use
  Company Number: KR-MERCK-1301KOR011806

PATIENT
  Sex: Female

DRUGS (1)
  1. MERCILON [Suspect]
     Indication: MENSTRUAL CYCLE MANAGEMENT
     Dosage: DESOGESTREL0.15MG /ETHYLESTRADIOL 0.02 MG
     Route: 048
     Dates: start: 201212, end: 201212

REACTIONS (5)
  - Loss of consciousness [Unknown]
  - Dysmenorrhoea [Unknown]
  - Tooth injury [Unknown]
  - Tooth avulsion [Unknown]
  - Off label use [Unknown]
